FAERS Safety Report 8857928 (Version 1)
Quarter: 2012Q4

REPORT INFORMATION
  Report Type: 
  Country: US (occurrence: US)
  Receive Date: 20121024
  Receipt Date: 20121024
  Transmission Date: 20130627
  Serious: No
  Sender: FDA-Public Use
  Company Number: US-AMGEN-USASP2012003210

PATIENT
  Age: 54 Year
  Sex: Female
  Weight: 70.3 kg

DRUGS (7)
  1. ENBREL [Suspect]
     Indication: PRODUCT USED FOR UNKNOWN INDICATION
     Dosage: 25 mg, 2 times/wk
     Route: 058
  2. CALCIUM + VIT D [Concomitant]
     Dosage: UNK
     Route: 048
  3. ALLEGRA [Concomitant]
     Dosage: 20 mg, UNK
     Route: 048
  4. FISH OIL [Concomitant]
     Dosage: UNK
     Route: 048
  5. LOTREL [Concomitant]
     Dosage: 5 mg, UNK
     Route: 048
  6. LOTREL [Concomitant]
     Dosage: 10 mg, UNK
     Route: 048
  7. CALCITRIOL [Concomitant]
     Dosage: 0.25 mug, UNK
     Route: 048

REACTIONS (1)
  - Sinusitis [Unknown]
